FAERS Safety Report 6453288-X (Version None)
Quarter: 2009Q4

REPORT INFORMATION
  Report Type: 
  Country: None (occurrence: None)
  Receive Date: 20091117
  Receipt Date: 20090917
  Transmission Date: 20100525
  Serious: Yes (Hospitalization)
  Sender: FDA-Public Use
  Company Number: 2009SP025778

PATIENT
  Age: 5 Year
  Sex: Female
  Weight: 19 kg

DRUGS (3)
  1. NASONEX [Suspect]
     Indication: ADENOIDAL DISORDER
     Dosage: QD;NAS
     Route: 045
     Dates: start: 20090701, end: 20090913
  2. NASONEX [Suspect]
     Indication: RHINITIS ALLERGIC
     Dosage: QD;NAS
     Route: 045
     Dates: start: 20090701, end: 20090913
  3. EPSILON AMINOCAPRONSAURE (CON.) [Concomitant]

REACTIONS (4)
  - FEELING COLD [None]
  - HYPERGLYCAEMIA [None]
  - HYPERHIDROSIS [None]
  - SOMNOLENCE [None]
